FAERS Safety Report 15351745 (Version 1)
Quarter: 2018Q3

REPORT INFORMATION
  Report Type: Spontaneous
  Country: JP (occurrence: JP)
  Receive Date: 20180905
  Receipt Date: 20180905
  Transmission Date: 20181010
  Serious: Yes (Other)
  Sender: FDA-Public Use
  Company Number: JP-MYLANLABS-2018M1064962

PATIENT
  Age: 82 Year
  Sex: Male

DRUGS (1)
  1. AZACITIDINE. [Suspect]
     Active Substance: AZACITIDINE
     Indication: MYELODYSPLASTIC SYNDROME
     Dosage: OVER 7 DAYS.
     Route: 065

REACTIONS (5)
  - Gingival bleeding [Recovered/Resolved]
  - Ecchymosis [Recovered/Resolved]
  - Coagulation factor deficiency [Recovered/Resolved]
  - Factor V inhibition [Recovered/Resolved]
  - Mouth haemorrhage [Recovered/Resolved]
